FAERS Safety Report 13382102 (Version 9)
Quarter: 2020Q1

REPORT INFORMATION
  Report Type: Report from Study
  Country: JP (occurrence: JP)
  Receive Date: 20170329
  Receipt Date: 20200108
  Transmission Date: 20200409
  Serious: Yes (Hospitalization, Other)
  Sender: FDA-Public Use
  Company Number: PHJP2017JP009874

PATIENT
  Age: 69 Year
  Sex: Female

DRUGS (49)
  1. SIGNIFOR LAR [Suspect]
     Active Substance: PASIREOTIDE PAMOATE
     Dosage: 40 MG, UNK
     Route: 030
     Dates: start: 20170510
  2. SIGNIFOR LAR [Suspect]
     Active Substance: PASIREOTIDE PAMOATE
     Dosage: 20 MG, UNK
     Route: 030
     Dates: start: 20170705
  3. SIGNIFOR LAR [Suspect]
     Active Substance: PASIREOTIDE PAMOATE
     Dosage: 20 MG
     Route: 030
     Dates: start: 20181107
  4. NOVOLIN N [Concomitant]
     Active Substance: INSULIN HUMAN
     Indication: DIABETES MELLITUS
     Dosage: 5 IU, UNK
     Route: 065
     Dates: start: 20170316, end: 20170316
  5. SIGNIFOR LAR [Suspect]
     Active Substance: PASIREOTIDE PAMOATE
     Dosage: 20 MG, UNK
     Route: 030
     Dates: start: 20180620
  6. SIGNIFOR LAR [Suspect]
     Active Substance: PASIREOTIDE PAMOATE
     Dosage: 20 MG
     Route: 030
     Dates: start: 20190306
  7. SIGNIFOR LAR [Suspect]
     Active Substance: PASIREOTIDE PAMOATE
     Dosage: 20 MG
     Route: 030
     Dates: start: 20190508
  8. SIGNIFOR LAR [Suspect]
     Active Substance: PASIREOTIDE PAMOATE
     Dosage: 20 MG
     Route: 030
     Dates: start: 20190703
  9. PIOGLITAZONE. [Concomitant]
     Active Substance: PIOGLITAZONE
     Indication: DIABETES MELLITUS
     Dosage: 7.5 MG, UNK
     Route: 048
     Dates: start: 20160112, end: 20171115
  10. MITIGLINIDE CALCIUM [Concomitant]
     Active Substance: MITIGLINIDE CALCIUM ANHYDROUS
     Dosage: 15 MG, UNK
     Route: 048
     Dates: start: 20171116, end: 20180221
  11. SIGNIFOR LAR [Suspect]
     Active Substance: PASIREOTIDE PAMOATE
     Dosage: 20 MG, UNK
     Route: 030
     Dates: start: 20170906
  12. SIGNIFOR LAR [Suspect]
     Active Substance: PASIREOTIDE PAMOATE
     Dosage: 20 MG
     Route: 030
     Dates: start: 20180815
  13. SIGNIFOR LAR [Suspect]
     Active Substance: PASIREOTIDE PAMOATE
     Dosage: 20 MG
     Route: 030
     Dates: start: 20181205
  14. SIGNIFOR LAR [Suspect]
     Active Substance: PASIREOTIDE PAMOATE
     Dosage: 20 MG
     Route: 030
     Dates: start: 20190605
  15. TENELIA [Concomitant]
     Active Substance: TENELIGLIPTIN
     Dosage: 20 MG
     Route: 048
     Dates: start: 20181107
  16. METGLUCO [Concomitant]
     Active Substance: METFORMIN HYDROCHLORIDE
     Indication: DIABETES MELLITUS
     Dosage: 1500 MG, UNK
     Route: 048
     Dates: start: 20151027, end: 20170315
  17. SIGNIFOR LAR [Suspect]
     Active Substance: PASIREOTIDE PAMOATE
     Indication: ACROMEGALY
     Dosage: 40 MG, UNK
     Route: 030
     Dates: start: 20170308
  18. SIGNIFOR LAR [Suspect]
     Active Substance: PASIREOTIDE PAMOATE
     Dosage: 20 MG, UNK
     Route: 030
     Dates: start: 20170607
  19. SIGNIFOR LAR [Suspect]
     Active Substance: PASIREOTIDE PAMOATE
     Dosage: 20 MG, UNK
     Route: 030
     Dates: start: 20180221
  20. SIGNIFOR LAR [Suspect]
     Active Substance: PASIREOTIDE PAMOATE
     Dosage: 20 MG
     Route: 030
     Dates: start: 20190807
  21. SIGNIFOR LAR [Suspect]
     Active Substance: PASIREOTIDE PAMOATE
     Dosage: 20 MG
     Route: 030
     Dates: start: 20190904
  22. TENELIA [Concomitant]
     Active Substance: TENELIGLIPTIN
     Indication: DIABETES MELLITUS
     Dosage: 20 MG, UNK
     Route: 048
     Dates: start: 20150708, end: 20180627
  23. NOVOLIN N [Concomitant]
     Active Substance: INSULIN HUMAN
     Dosage: 14 IU, UNK
     Route: 065
     Dates: start: 20170319, end: 20170319
  24. SIGNIFOR LAR [Suspect]
     Active Substance: PASIREOTIDE PAMOATE
     Dosage: 20 MG, UNK
     Route: 030
     Dates: start: 20170802
  25. SIGNIFOR LAR [Suspect]
     Active Substance: PASIREOTIDE PAMOATE
     Dosage: 20 MG, UNK
     Route: 030
     Dates: start: 20171227
  26. SIGNIFOR LAR [Suspect]
     Active Substance: PASIREOTIDE PAMOATE
     Dosage: 20 MG, UNK
     Route: 030
     Dates: start: 20180523
  27. SIGNIFOR LAR [Suspect]
     Active Substance: PASIREOTIDE PAMOATE
     Dosage: 20 MG
     Route: 030
     Dates: start: 20191002
  28. CABASER [Concomitant]
     Active Substance: CABERGOLINE
     Indication: PRODUCT USED FOR UNKNOWN INDICATION
     Dosage: UNK
     Route: 048
  29. MITIGLINIDE CALCIUM [Concomitant]
     Active Substance: MITIGLINIDE CALCIUM ANHYDROUS
     Dosage: 30 MG
     Route: 048
     Dates: start: 20181107, end: 20190807
  30. SIGNIFOR LAR [Suspect]
     Active Substance: PASIREOTIDE PAMOATE
     Dosage: 40 MG, UNK
     Route: 030
     Dates: start: 20170405
  31. SIGNIFOR LAR [Suspect]
     Active Substance: PASIREOTIDE PAMOATE
     Dosage: 20 MG, UNK
     Route: 030
     Dates: start: 20171004
  32. SIGNIFOR LAR [Suspect]
     Active Substance: PASIREOTIDE PAMOATE
     Dosage: 20 MG, UNK
     Route: 030
     Dates: start: 20171101
  33. SIGNIFOR LAR [Suspect]
     Active Substance: PASIREOTIDE PAMOATE
     Dosage: 20 MG, UNK
     Route: 030
     Dates: start: 20180328
  34. SIGNIFOR LAR [Suspect]
     Active Substance: PASIREOTIDE PAMOATE
     Dosage: 20 MG
     Route: 030
     Dates: start: 20180718
  35. SIGNIFOR LAR [Suspect]
     Active Substance: PASIREOTIDE PAMOATE
     Dosage: 20 MG
     Route: 030
     Dates: start: 20181010
  36. SIGNIFOR LAR [Suspect]
     Active Substance: PASIREOTIDE PAMOATE
     Dosage: 20 MG
     Route: 030
     Dates: start: 20190403
  37. SIGNIFOR LAR [Suspect]
     Active Substance: PASIREOTIDE PAMOATE
     Dosage: 20 MG
     Route: 030
     Dates: start: 20191106
  38. MITIGLINIDE CALCIUM [Concomitant]
     Active Substance: MITIGLINIDE CALCIUM ANHYDROUS
     Indication: DIABETES MELLITUS
     Dosage: 10 MG, UNK
     Route: 048
     Dates: start: 20170906, end: 20171115
  39. MITIGLINIDE CALCIUM [Concomitant]
     Active Substance: MITIGLINIDE CALCIUM ANHYDROUS
     Dosage: 30 MG, UNK
     Route: 048
     Dates: start: 20180222, end: 20180627
  40. SIGNIFOR LAR [Suspect]
     Active Substance: PASIREOTIDE PAMOATE
     Dosage: 20 MG
     Route: 030
     Dates: start: 20190109
  41. NOVOLIN N [Concomitant]
     Active Substance: INSULIN HUMAN
     Dosage: 7 IU, UNK
     Route: 065
     Dates: start: 20170317, end: 20170317
  42. NOVOLIN N [Concomitant]
     Active Substance: INSULIN HUMAN
     Dosage: 10 IU, UNK
     Route: 065
     Dates: start: 20170318, end: 20170318
  43. SIGNIFOR LAR [Suspect]
     Active Substance: PASIREOTIDE PAMOATE
     Dosage: 20 MG, UNK
     Route: 030
     Dates: start: 20171129
  44. SIGNIFOR LAR [Suspect]
     Active Substance: PASIREOTIDE PAMOATE
     Dosage: 20 MG, UNK
     Route: 030
     Dates: start: 20180124
  45. SIGNIFOR LAR [Suspect]
     Active Substance: PASIREOTIDE PAMOATE
     Dosage: 20 MG, UNK
     Route: 030
     Dates: start: 20180425
  46. SIGNIFOR LAR [Suspect]
     Active Substance: PASIREOTIDE PAMOATE
     Dosage: 20 MG
     Route: 030
     Dates: start: 20180912
  47. SIGNIFOR LAR [Suspect]
     Active Substance: PASIREOTIDE PAMOATE
     Dosage: 20 MG
     Route: 030
     Dates: start: 20190206
  48. NOVOLIN N [Concomitant]
     Active Substance: INSULIN HUMAN
     Indication: DIABETES MELLITUS
     Dosage: 3 IU, UNK
     Route: 058
     Dates: start: 20170314, end: 20170315
  49. NOVOLIN N [Concomitant]
     Active Substance: INSULIN HUMAN
     Dosage: 14 IU, UNK
     Route: 065
     Dates: start: 20170320, end: 20170328

REACTIONS (4)
  - Diabetes mellitus [Recovering/Resolving]
  - Constipation [Recovered/Resolved]
  - Arthralgia [Recovered/Resolved]
  - Hepatic function abnormal [Recovering/Resolving]

NARRATIVE: CASE EVENT DATE: 20170314
